FAERS Safety Report 14930879 (Version 2)
Quarter: 2019Q3

REPORT INFORMATION
  Report Type: Spontaneous
  Country: US (occurrence: US)
  Receive Date: 20180524
  Receipt Date: 20190702
  Transmission Date: 20191004
  Serious: No
  Sender: FDA-Public Use
  Company Number: US-BAUSCH-BL-2017-031880

PATIENT
  Age: 74 Year
  Sex: Female
  Weight: 50.39 kg

DRUGS (8)
  1. DUREZOL [Concomitant]
     Active Substance: DIFLUPREDNATE
     Indication: PREOPERATIVE CARE
     Dosage: IN THE RIGHT EYE (FIRST WEEK)
     Route: 031
     Dates: start: 20171031, end: 201711
  2. DUREZOL [Concomitant]
     Active Substance: DIFLUPREDNATE
     Dosage: IN THE RIGHT EYE (THIRD WEEK)
     Route: 031
     Dates: start: 201711, end: 20171120
  3. PROLENSA [Suspect]
     Active Substance: BROMFENAC SODIUM
     Dosage: SUPPOSED TO USE SUSPECT PRODUCT TILL 02/DEC/2017
     Route: 031
     Dates: start: 201711
  4. DUREZOL [Concomitant]
     Active Substance: DIFLUPREDNATE
     Dosage: IN THE RIGHT EYE (SECOND WEEK)
     Route: 031
     Dates: start: 201711, end: 201711
  5. PROLENSA [Suspect]
     Active Substance: BROMFENAC SODIUM
     Dosage: TWO DROPS IN RIGHT EYE
     Route: 031
     Dates: start: 20171031, end: 20171031
  6. PROLENSA [Suspect]
     Active Substance: BROMFENAC SODIUM
     Indication: PREOPERATIVE CARE
     Dosage: 1 DROP IN THE RIGHT EYE ONCE AT NIGHT
     Route: 031
     Dates: start: 20171029, end: 20171030
  7. BESIVANCE [Suspect]
     Active Substance: BESIFLOXACIN
     Indication: OFF LABEL USE
  8. BESIVANCE [Suspect]
     Active Substance: BESIFLOXACIN
     Indication: PREOPERATIVE CARE
     Dosage: IN THE RIGHT EYE
     Route: 031
     Dates: start: 20171029, end: 20171116

REACTIONS (5)
  - Intentional product use issue [Unknown]
  - Eye pain [Recovering/Resolving]
  - Foreign body sensation in eyes [Unknown]
  - Extra dose administered [Unknown]
  - Inappropriate schedule of product administration [Unknown]

NARRATIVE: CASE EVENT DATE: 2017
